FAERS Safety Report 5201436-1 (Version None)
Quarter: 2007Q1

REPORT INFORMATION
  Report Type: 
  Country: None (occurrence: None)
  Receive Date: 20070108
  Receipt Date: 20061226
  Transmission Date: 20070707
  Serious: Yes (Hospitalization)
  Sender: FDA-Public Use
  Company Number: FR-BRISTOL-MYERS SQUIBB COMPANY-13605530

PATIENT
  Age: 40 Year
  Sex: Male

DRUGS (4)
  1. VIDEX EC [Suspect]
     Indication: HIV INFECTION
     Route: 048
     Dates: end: 20061019
  2. TRUVADA [Suspect]
     Indication: HIV INFECTION
     Route: 048
     Dates: end: 20061019
  3. TELZIR [Concomitant]
  4. NORVIR [Concomitant]

REACTIONS (8)
  - FANCONI SYNDROME [None]
  - GENERAL PHYSICAL HEALTH DETERIORATION [None]
  - HYPOPHOSPHATAEMIA [None]
  - MITOCHONDRIAL CYTOPATHY [None]
  - NEPHROGENIC DIABETES INSIPIDUS [None]
  - POLYURIA [None]
  - RENAL FAILURE ACUTE [None]
  - WEIGHT DECREASED [None]
